FAERS Safety Report 9772528 (Version 1)
Quarter: 2013Q4

REPORT INFORMATION
  Report Type: Spontaneous
  Country: US (occurrence: US)
  Receive Date: 20131219
  Receipt Date: 20131219
  Transmission Date: 20140711
  Serious: Yes (Other)
  Sender: FDA-Public Use
  Company Number: US-SA-2013SA131090

PATIENT
  Age: 28 Year
  Sex: Female
  Weight: 79.5 kg

DRUGS (23)
  1. FABRAZYME [Suspect]
     Indication: FABRY^S DISEASE
     Route: 042
     Dates: start: 20051107
  2. FABRAZYME [Suspect]
     Indication: FABRY^S DISEASE
     Route: 042
     Dates: start: 20051107
  3. PROVIGIL [Concomitant]
  4. ASENAPINE [Concomitant]
  5. DIPHENHYDRAMINE [Concomitant]
  6. HEPARIN [Concomitant]
  7. NORMAL SALINE [Concomitant]
  8. WATER [Concomitant]
     Dosage: STERILE WATER
  9. EPIPEN [Concomitant]
  10. LIDOCAINE [Concomitant]
  11. CIPRO [Concomitant]
  12. MORPHINE [Concomitant]
     Dosage: MORPHINE-NS
  13. REGLAN [Concomitant]
  14. BACLOFEN [Concomitant]
  15. ATIVAN [Concomitant]
  16. ZYRTEC [Concomitant]
  17. HYDROCHLOROTHIAZIDE [Concomitant]
  18. SINGULAIR [Concomitant]
  19. ADVAIR [Concomitant]
  20. ELAVIL [Concomitant]
  21. NAPROXEN [Concomitant]
     Dosage: AF-NAPROXEN
  22. RHINOCORT [Concomitant]
  23. SODIUM CHLORIDE [Concomitant]

REACTIONS (1)
  - Transient ischaemic attack [Not Recovered/Not Resolved]
